FAERS Safety Report 23727943 (Version 1)
Quarter: 2024Q2

REPORT INFORMATION
  Report Type: Report from Study
  Country: CO (occurrence: None)
  Receive Date: 20240410
  Receipt Date: 20240410
  Transmission Date: 20240716
  Serious: Yes (Other)
  Sender: FDA-Public Use
  Company Number: 2024A080853

PATIENT
  Age: 21466 Day
  Sex: Female

DRUGS (1)
  1. LYNPARZA [Suspect]
     Active Substance: OLAPARIB
     Indication: Metastases to ovary
     Route: 048
     Dates: start: 20230215

REACTIONS (4)
  - Mobility decreased [Recovering/Resolving]
  - Gait disturbance [Recovering/Resolving]
  - Brain oedema [Recovering/Resolving]
  - Gait deviation [Recovering/Resolving]

NARRATIVE: CASE EVENT DATE: 20240304
